FAERS Safety Report 7367429-3 (Version None)
Quarter: 2011Q1

REPORT INFORMATION
  Report Type: 
  Country: None (occurrence: None)
  Receive Date: 20110322
  Receipt Date: 20110316
  Transmission Date: 20110831
  Serious: Yes (Hospitalization)
  Sender: FDA-Public Use
  Company Number: JP-ABBOTT-10P-087-0646263-00

PATIENT
  Sex: Female
  Weight: 58 kg

DRUGS (5)
  1. CALCIPOTRIOL [Concomitant]
     Indication: PSORIASIS
     Route: 061
     Dates: start: 20060401
  2. URSODESOXYCHOLIC ACID [Concomitant]
     Indication: HEPATIC FUNCTION ABNORMAL
     Route: 048
     Dates: start: 20060901
  3. CETIRIZINE HYDROCHLORIDE [Concomitant]
     Indication: PRURITUS
     Route: 048
     Dates: start: 20060401
  4. HUMIRA [Suspect]
     Indication: PSORIASIS
     Route: 058
     Dates: start: 20100428, end: 20100428
  5. OLMESARTAN MEDOXOMIL [Concomitant]
     Indication: HYPERTENSION
     Route: 048
     Dates: start: 20060401

REACTIONS (6)
  - MALAISE [None]
  - CHILLS [None]
  - GAIT DISTURBANCE [None]
  - WEIGHT DECREASED [None]
  - DECREASED APPETITE [None]
  - EMOTIONAL DISTRESS [None]
